FAERS Safety Report 22208924 (Version 1)
Quarter: 2023Q2

REPORT INFORMATION
  Report Type: Spontaneous
  Country: US (occurrence: US)
  Receive Date: 20230413
  Receipt Date: 20230413
  Transmission Date: 20230722
  Serious: No
  Sender: FDA-Public Use
  Company Number: US-JNJFOC-20190930134

PATIENT
  Age: 83 Year
  Sex: Female
  Weight: 77.180 kg

DRUGS (1)
  1. IMODIUM A-D [Suspect]
     Active Substance: LOPERAMIDE HYDROCHLORIDE
     Indication: Diarrhoea
     Dosage: 1 CAPLET 1X PER DAY
     Route: 048
     Dates: start: 20190913, end: 20190920

REACTIONS (1)
  - Inappropriate schedule of product administration [Unknown]
